FAERS Safety Report 11492181 (Version 6)
Quarter: 2016Q1

REPORT INFORMATION
  Report Type: Report from Study
  Country: US (occurrence: US)
  Receive Date: 20150910
  Receipt Date: 20160201
  Transmission Date: 20160525
  Serious: Yes (Death, Hospitalization, Other)
  Sender: FDA-Public Use
  Company Number: US-BAYER-2014-170421

PATIENT
  Age: 70 Year
  Sex: Female
  Weight: 107.94 kg

DRUGS (10)
  1. ADEMPAS [Suspect]
     Active Substance: RIOCIGUAT
     Indication: PULMONARY HYPERTENSION
     Dosage: 1.5MG,TID (LAST SHIPPED DATE 04-AUG-2015)
     Route: 048
  2. ADEMPAS [Suspect]
     Active Substance: RIOCIGUAT
     Indication: PULMONARY HYPERTENSION
     Dosage: 1.5 MG, TID (LAST SHIPPED DATE 05-OCT-2015)
     Route: 048
  3. ADCIRCA [Suspect]
     Active Substance: TADALAFIL
  4. ADEMPAS [Suspect]
     Active Substance: RIOCIGUAT
     Indication: PULMONARY HYPERTENSION
     Dosage: UNK
     Dates: start: 20140620
  5. ADEMPAS [Suspect]
     Active Substance: RIOCIGUAT
     Indication: PULMONARY HYPERTENSION
     Dosage: 2 MG, TID
     Route: 048
  6. ADEMPAS [Suspect]
     Active Substance: RIOCIGUAT
     Indication: PULMONARY HYPERTENSION
     Dosage: 1.5 MG, TID
     Route: 048
  7. ADEMPAS [Suspect]
     Active Substance: RIOCIGUAT
     Indication: PULMONARY HYPERTENSION
     Dosage: 1 MG, TID
     Route: 048
  8. ADEMPAS [Suspect]
     Active Substance: RIOCIGUAT
     Indication: PULMONARY HYPERTENSION
     Dosage: 2.5 MG, TID
     Route: 048
  9. ADEMPAS [Suspect]
     Active Substance: RIOCIGUAT
     Indication: PULMONARY HYPERTENSION
     Dosage: 2.5 MG, TID
     Route: 048
  10. ADEMPAS [Suspect]
     Active Substance: RIOCIGUAT
     Indication: PULMONARY HYPERTENSION
     Dosage: 1.5 MG, TID (LAST SHIP DATE 21-APR-2015)
     Route: 048

REACTIONS (41)
  - Haemorrhage [None]
  - Syncope [None]
  - Epistaxis [Unknown]
  - Seasonal allergy [Unknown]
  - Rhinorrhoea [Unknown]
  - Sneezing [Unknown]
  - Melanocytic naevus [Unknown]
  - Drug ineffective [Unknown]
  - Speech disorder [Unknown]
  - Syncope [None]
  - Fractured coccyx [None]
  - Limb discomfort [None]
  - Asthenia [None]
  - Dry skin [Unknown]
  - Nasal septum deviation [Unknown]
  - Nausea [Unknown]
  - Interstitial lung disease [Unknown]
  - Systemic lupus erythematosus [Unknown]
  - Feeling abnormal [Unknown]
  - Nasopharyngitis [Unknown]
  - Headache [Unknown]
  - Cough [Unknown]
  - Hypotension [None]
  - Fatigue [Unknown]
  - Fatigue [None]
  - Decreased appetite [Unknown]
  - Pericardial effusion [Unknown]
  - Dyspnoea [Unknown]
  - Dyspnoea exertional [Unknown]
  - Death [Fatal]
  - Cholelithiasis [None]
  - Cardiac failure congestive [Unknown]
  - Pleural effusion [Unknown]
  - Headache [None]
  - Dizziness [None]
  - Fall [None]
  - Drug ineffective [None]
  - Oedema [None]
  - Dizziness [None]
  - Somnolence [None]
  - Pneumonia [Unknown]

NARRATIVE: CASE EVENT DATE: 201505
